FAERS Safety Report 4979003-4 (Version None)
Quarter: 2006Q2

REPORT INFORMATION
  Report Type: 
  Country: None (occurrence: None)
  Receive Date: 20060419
  Receipt Date: 20060419
  Transmission Date: 20061013
  Serious: Yes (Hospitalization, Other)
  Sender: FDA-Public Use
  Company Number: None

PATIENT
  Sex: Male
  Weight: 84.369 kg

DRUGS (2)
  1. LOVASTATIN [Suspect]
     Indication: HYPERCHOLESTEROLAEMIA
     Dosage: 40MG    QHS    PO
     Route: 048
     Dates: start: 20040803, end: 20060215
  2. LAMISIL [Suspect]
     Indication: ONYCHOMYCOSIS
     Dosage: 250MG       QD     PO
     Route: 048
     Dates: start: 20040815, end: 20060215

REACTIONS (15)
  - ALANINE AMINOTRANSFERASE INCREASED [None]
  - ASPARTATE AMINOTRANSFERASE INCREASED [None]
  - BLOOD ALKALINE PHOSPHATASE INCREASED [None]
  - BLOOD BILIRUBIN INCREASED [None]
  - BLOOD CREATININE INCREASED [None]
  - BLOOD GLUCOSE INCREASED [None]
  - BLOOD SODIUM DECREASED [None]
  - BLOOD UREA INCREASED [None]
  - CARBON DIOXIDE DECREASED [None]
  - CHROMATURIA [None]
  - INJURY [None]
  - JAUNDICE [None]
  - LIPASE INCREASED [None]
  - PRURITUS [None]
  - SERUM FERRITIN INCREASED [None]
